FAERS Safety Report 8299778-9 (Version None)
Quarter: 2012Q2

REPORT INFORMATION
  Report Type: 
  Country: None (occurrence: None)
  Receive Date: 20120419
  Receipt Date: 20120419
  Transmission Date: 20120825
  Serious: Yes (Other)
  Sender: FDA-Public Use
  Company Number: None

PATIENT
  Age: 5 Year
  Sex: Male
  Weight: 21.772 kg

DRUGS (1)
  1. SINGULAIR [Suspect]
     Indication: NASAL CONGESTION
     Dosage: 1 CHEW TABLET
     Route: 048
     Dates: start: 20120311, end: 20120416

REACTIONS (3)
  - FORMICATION [None]
  - DRUG WITHDRAWAL SYNDROME [None]
  - DRUG DOSE OMISSION [None]
